FAERS Safety Report 24292303 (Version 6)
Quarter: 2024Q4

REPORT INFORMATION
  Report Type: Spontaneous
  Country: US (occurrence: US)
  Receive Date: 20240906
  Receipt Date: 20241210
  Transmission Date: 20250115
  Serious: No
  Sender: PFIZER
  Company Number: US-PFIZER INC-PV202400115291

PATIENT
  Age: 8 Year
  Sex: Male
  Weight: 16 kg

DRUGS (3)
  1. GENOTROPIN [Suspect]
     Active Substance: SOMATROPIN
     Indication: Short stature
     Dosage: 0.65 MG/DAY 7 DAYS /WK
     Route: 058
  2. GENOTROPIN [Suspect]
     Active Substance: SOMATROPIN
     Indication: Endocrine disorder
     Dosage: 0.7 MG/DAY 7 DAYS/WK
     Route: 058
  3. GENOTROPIN [Suspect]
     Active Substance: SOMATROPIN
     Indication: Growth hormone deficiency
     Dosage: 0.7 MG, 1X/DAY, AT BEDTIME
     Dates: start: 20240930

REACTIONS (7)
  - Neutrophil count increased [Unknown]
  - Malnutrition [Not Recovered/Not Resolved]
  - Injection site pain [Unknown]
  - Product prescribing error [Unknown]
  - Drug dose omission by device [Unknown]
  - Device use error [Unknown]
  - Product storage error [Unknown]

NARRATIVE: CASE EVENT DATE: 20240401
